FAERS Safety Report 10982405 (Version 2)
Quarter: 2015Q2

REPORT INFORMATION
  Report Type: Spontaneous
  Country: US (occurrence: US)
  Receive Date: 20150403
  Receipt Date: 20150520
  Transmission Date: 20150821
  Serious: No
  Sender: FDA-Public Use
  Company Number: US-PFIZER INC-2015112420

PATIENT
  Age: 94 Year
  Sex: Female
  Weight: 68 kg

DRUGS (1)
  1. NITROSTAT [Suspect]
     Active Substance: NITROGLYCERIN
     Indication: CHEST PAIN
     Dosage: 0.4 MG, AS NEEDED

REACTIONS (1)
  - Drug ineffective [Unknown]
